FAERS Safety Report 13148205 (Version 2)
Quarter: 2017Q1

REPORT INFORMATION
  Report Type: Report from Study
  Country: US (occurrence: US)
  Receive Date: 20170124
  Receipt Date: 20170124
  Transmission Date: 20170428
  Serious: No
  Sender: FDA-Public Use
  Company Number: US-AMGEN-USASL2016172865

PATIENT
  Age: 46 Year
  Sex: Male

DRUGS (1)
  1. REPATHA [Suspect]
     Active Substance: EVOLOCUMAB
     Indication: BLOOD CHOLESTEROL INCREASED
     Dosage: 140 MG, QMO
     Route: 065
     Dates: start: 201606

REACTIONS (5)
  - Off label use [Unknown]
  - Therapy non-responder [Unknown]
  - Impaired healing [Unknown]
  - Myalgia [Unknown]
  - Laceration [Unknown]

NARRATIVE: CASE EVENT DATE: 2016
